FAERS Safety Report 15465263 (Version 2)
Quarter: 2019Q2

REPORT INFORMATION
  Report Type: Spontaneous
  Country: US (occurrence: US)
  Receive Date: 20181004
  Receipt Date: 20190515
  Transmission Date: 20190711
  Serious: No
  Sender: FDA-Public Use
  Company Number: US-VIFOR (INTERNATIONAL) INC.-VIT-2018-09718

PATIENT
  Sex: Female

DRUGS (14)
  1. ZOCOR [Concomitant]
     Active Substance: SIMVASTATIN
  2. VELTASSA [Suspect]
     Active Substance: PATIROMER
     Indication: HYPERKALAEMIA
     Route: 048
     Dates: start: 20180913
  3. CORGARD [Concomitant]
     Active Substance: NADOLOL
  4. TRAZODONE HYDROCHLORIDE. [Concomitant]
     Active Substance: TRAZODONE HYDROCHLORIDE
  5. ULORIC [Concomitant]
     Active Substance: FEBUXOSTAT
  6. ACYCLOVIR. [Concomitant]
     Active Substance: ACYCLOVIR
  7. PRESERVISION AREDS 2 [Concomitant]
     Active Substance: MINERALS\VITAMINS
  8. BUPROPION HCL [Concomitant]
     Active Substance: BUPROPION HYDROCHLORIDE
  9. TYLENOL [Concomitant]
     Active Substance: ACETAMINOPHEN
  10. DEMADEX [Concomitant]
     Active Substance: TORSEMIDE
  11. COZAAR [Concomitant]
     Active Substance: LOSARTAN POTASSIUM
  12. ALDACTONE [Concomitant]
     Active Substance: SPIRONOLACTONE
  13. CARDURA [Concomitant]
     Active Substance: DOXAZOSIN MESYLATE
  14. PEPCID [Concomitant]
     Active Substance: FAMOTIDINE

REACTIONS (3)
  - Product physical issue [Not Recovered/Not Resolved]
  - Constipation [Unknown]
  - Product dose omission [Not Recovered/Not Resolved]

NARRATIVE: CASE EVENT DATE: 2018
